FAERS Safety Report 7490201-0 (Version None)
Quarter: 2011Q2

REPORT INFORMATION
  Report Type: 
  Country: None (occurrence: None)
  Receive Date: 20110517
  Receipt Date: 20110517
  Transmission Date: 20111010
  Serious: Yes (Hospitalization)
  Sender: FDA-Public Use
  Company Number: None

PATIENT
  Age: 68 Year
  Sex: Male
  Weight: 93.441 kg

DRUGS (2)
  1. RECLAST [Suspect]
     Indication: OSTEOPOROSIS
     Dosage: 5MG ONCE IV DRIP   15 MINUTE INFUSION
     Route: 041
     Dates: start: 20110512, end: 20110512
  2. RECLAST [Suspect]
     Indication: DRUG INTOLERANCE
     Dosage: 5MG ONCE IV DRIP   15 MINUTE INFUSION
     Route: 041
     Dates: start: 20110512, end: 20110512

REACTIONS (5)
  - SINUS TACHYCARDIA [None]
  - CONDITION AGGRAVATED [None]
  - CHRONIC OBSTRUCTIVE PULMONARY DISEASE [None]
  - DYSPNOEA [None]
  - PNEUMONIA VIRAL [None]
